FAERS Safety Report 8737955 (Version 2)
Quarter: 2013Q4

REPORT INFORMATION
  Report Type: Spontaneous
  Country: JP (occurrence: JP)
  Receive Date: 20120823
  Receipt Date: 20131105
  Transmission Date: 20140711
  Serious: Yes (Life-Threatening, Hospitalization)
  Sender: FDA-Public Use
  Company Number: JP-MERCK-1206USA03570

PATIENT
  Age: 66 Year
  Sex: Male

DRUGS (8)
  1. GLACTIV [Suspect]
     Indication: TYPE 2 DIABETES MELLITUS
     Dosage: 50 MG, QD
     Route: 048
     Dates: start: 20101206
  2. PLETAAL [Concomitant]
     Dosage: UNK
     Dates: start: 20101206, end: 20110524
  3. MELBIN [Concomitant]
     Dosage: UNK
     Dates: start: 20101206
  4. AMARYL [Concomitant]
     Dosage: UNK
     Dates: start: 20101206, end: 20110404
  5. AMARYL [Concomitant]
     Dosage: 2 MG, UNK
     Dates: start: 20110405
  6. PARIET [Concomitant]
     Dosage: UNK
     Dates: start: 20101206
  7. CRESTOR [Concomitant]
     Dosage: UNK
     Dates: start: 20110210
  8. ACTOS [Concomitant]
     Dosage: UNK
     Dates: start: 20110308, end: 20110524

REACTIONS (2)
  - Hypertrophic cardiomyopathy [Unknown]
  - Cardiac failure [Unknown]
